FAERS Safety Report 23379427 (Version 4)
Quarter: 2024Q2

REPORT INFORMATION
  Report Type: Spontaneous
  Country: JP (occurrence: JP)
  Receive Date: 20240108
  Receipt Date: 20240401
  Transmission Date: 20240716
  Serious: Yes (Hospitalization, Disabling, Other)
  Sender: FDA-Public Use
  Company Number: EC-2024-156358

PATIENT
  Age: 75 Year
  Sex: Female

DRUGS (1)
  1. TARGRETIN [Suspect]
     Active Substance: BEXAROTENE
     Indication: Cutaneous T-cell lymphoma
     Route: 048
     Dates: start: 20230524

REACTIONS (4)
  - Adrenal insufficiency [Recovering/Resolving]
  - Cerebral infarction [Recovered/Resolved with Sequelae]
  - Dyslipidaemia [Not Recovered/Not Resolved]
  - Central hypothyroidism [Not Recovered/Not Resolved]

NARRATIVE: CASE EVENT DATE: 20230601
